FAERS Safety Report 10277452 (Version 3)
Quarter: 2014Q4

REPORT INFORMATION
  Report Type: Spontaneous
  Country: BR (occurrence: BR)
  Receive Date: 20140703
  Receipt Date: 20141127
  Transmission Date: 20150528
  Serious: Yes (Other)
  Sender: FDA-Public Use
  Company Number: BR-ROCHE-1429273

PATIENT
  Age: 32 Year
  Sex: Female
  Weight: 60 kg

DRUGS (8)
  1. PACLITAXEL. [Concomitant]
     Active Substance: PACLITAXEL
     Indication: BREAST NEOPLASM
  2. AVASTIN [Suspect]
     Active Substance: BEVACIZUMAB
     Indication: METASTASES TO LIVER
     Dosage: STOPPED AT THE 8TH CYCLE.
     Route: 065
     Dates: start: 20130612, end: 20140326
  3. ONDANSETRON [Concomitant]
     Active Substance: ONDANSETRON
     Route: 042
     Dates: start: 20130612, end: 20140326
  4. AVASTIN [Suspect]
     Active Substance: BEVACIZUMAB
     Indication: BREAST NEOPLASM
  5. DEXAMETHASONE. [Concomitant]
     Active Substance: DEXAMETHASONE
     Route: 042
  6. PHENOBARBITAL. [Concomitant]
     Active Substance: PHENOBARBITAL
     Route: 065
  7. PACLITAXEL. [Concomitant]
     Active Substance: PACLITAXEL
     Indication: BREAST CANCER METASTATIC
     Route: 042
     Dates: start: 20130612, end: 20140326
  8. TOPIRAMATE. [Concomitant]
     Active Substance: TOPIRAMATE
     Route: 065

REACTIONS (2)
  - Epilepsy [Recovered/Resolved]
  - Therapy responder [Unknown]

NARRATIVE: CASE EVENT DATE: 20140114
